FAERS Safety Report 4379195-4 (Version None)
Quarter: 2004Q2

REPORT INFORMATION
  Report Type: 
  Country: None (occurrence: None)
  Receive Date: 20040610
  Receipt Date: 20040525
  Transmission Date: 20050107
  Serious: Yes (Hospitalization)
  Sender: FDA-Public Use
  Company Number: 194256

PATIENT
  Age: 47 Year
  Sex: Female
  Weight: 86.637 kg

DRUGS (5)
  1. AVONEX [Suspect]
     Indication: MULTIPLE SCLEROSIS
     Dosage: 30 MCG QW IM
     Route: 030
     Dates: start: 20020101, end: 20030801
  2. AVONEX [Suspect]
     Indication: MULTIPLE SCLEROSIS
     Dosage: 30 MCG QW IM
     Route: 030
     Dates: start: 20030801
  3. GLUCOPHAGE   UNS [Concomitant]
  4. LISINOPRIL [Concomitant]
  5. ZOLOFT [Suspect]

REACTIONS (7)
  - BLOOD GLUCOSE INCREASED [None]
  - BREAST CANCER STAGE II [None]
  - FATIGUE [None]
  - GASTROOESOPHAGEAL REFLUX DISEASE [None]
  - MIGRAINE [None]
  - MULTIPLE SCLEROSIS [None]
  - PYREXIA [None]
